FAERS Safety Report 9346599 (Version 2)
Quarter: 2013Q4

REPORT INFORMATION
  Report Type: Spontaneous
  Country: US (occurrence: US)
  Receive Date: 20130613
  Receipt Date: 20131122
  Transmission Date: 20140711
  Serious: Yes (Hospitalization, Other)
  Sender: FDA-Public Use
  Company Number: US-BAYER-2013-070774

PATIENT
  Age: 33 Year
  Sex: Female

DRUGS (6)
  1. YASMIN [Suspect]
  2. FLEXERIL [Concomitant]
     Dosage: 5 MG, UNK
  3. HYDROCODONE W/APAP [Concomitant]
     Dosage: 5 MG / 500 MG
  4. PROTONIX [Concomitant]
  5. XANAX [Concomitant]
     Indication: ANXIETY
  6. VICODIN [Concomitant]
     Indication: PAIN

REACTIONS (3)
  - Deep vein thrombosis [None]
  - Thrombophlebitis [None]
  - Thrombophlebitis superficial [None]
